FAERS Safety Report 13784587 (Version 1)
Quarter: 2017Q3

REPORT INFORMATION
  Report Type: Spontaneous
  Country: US (occurrence: US)
  Receive Date: 20170724
  Receipt Date: 20170724
  Transmission Date: 20171127
  Serious: Yes (Hospitalization)
  Sender: FDA-Public Use
  Company Number: None

PATIENT
  Age: 65 Year
  Sex: Male

DRUGS (1)
  1. FERUMOXYTOL [Suspect]
     Active Substance: FERUMOXYTOL
     Indication: ANAEMIA
     Route: 042
     Dates: start: 20170526, end: 20170526

REACTIONS (4)
  - Cardio-respiratory arrest [None]
  - Urinary incontinence [None]
  - Seizure [None]
  - Musculoskeletal chest pain [None]

NARRATIVE: CASE EVENT DATE: 20170525
